FAERS Safety Report 5080273-5 (Version None)
Quarter: 2006Q3

REPORT INFORMATION
  Report Type: 
  Country: None (occurrence: None)
  Receive Date: 20060815
  Receipt Date: 20060804
  Transmission Date: 20061208
  Serious: Yes (Hospitalization)
  Sender: FDA-Public Use
  Company Number: JP-ABBOTT-06P-087-0339634-00

PATIENT
  Age: 65 Year
  Sex: Female

DRUGS (2)
  1. CLARITH [Suspect]
     Indication: PNEUMONIA
     Route: 048
     Dates: start: 20060712
  2. DORIPENEM [Suspect]
     Indication: PNEUMONIA
     Route: 041
     Dates: start: 20060710, end: 20060712

REACTIONS (1)
  - NEUTROPENIA [None]
